FAERS Safety Report 17815552 (Version 2)
Quarter: 2020Q2

REPORT INFORMATION
  Report Type: Report from Study
  Country: US (occurrence: US)
  Receive Date: 20200522
  Receipt Date: 20200615
  Transmission Date: 20200714
  Serious: Yes (Hospitalization)
  Sender: FDA-Public Use
  Company Number: NVSC2020US140133

PATIENT
  Sex: Female

DRUGS (2)
  1. AFINITOR [Suspect]
     Active Substance: EVEROLIMUS
     Indication: RENAL CANCER
     Dosage: 5 MG, QD
     Route: 048
  2. LENVIMA [Suspect]
     Active Substance: LENVATINIB
     Indication: RENAL CANCER
     Dosage: 14 MG, QD
     Route: 048
     Dates: start: 20200328

REACTIONS (7)
  - Frustration tolerance decreased [Recovering/Resolving]
  - Fatigue [Not Recovered/Not Resolved]
  - Disorientation [Recovering/Resolving]
  - Stomatitis [Not Recovered/Not Resolved]
  - Back pain [Unknown]
  - Amnesia [Unknown]
  - Taste disorder [Recovering/Resolving]
